FAERS Safety Report 24108831 (Version 1)
Quarter: 2024Q3

REPORT INFORMATION
  Report Type: Report from Study
  Country: US (occurrence: None)
  Receive Date: 20240718
  Receipt Date: 20240718
  Transmission Date: 20241016
  Serious: Yes (Other)
  Sender: ASTRAZENECA
  Company Number: 2020SE70457

PATIENT
  Sex: Female

DRUGS (1)
  1. LYNPARZA [Suspect]
     Active Substance: OLAPARIB
     Indication: Ovarian cancer
     Route: 048
     Dates: start: 20200527

REACTIONS (5)
  - Cerebrovascular accident [Unknown]
  - Myocardial infarction [Unknown]
  - Facial paralysis [Unknown]
  - Dyspnoea [Unknown]
  - Nausea [Unknown]
